FAERS Safety Report 7542119-2 (Version None)
Quarter: 2011Q2

REPORT INFORMATION
  Report Type: 
  Country: None (occurrence: None)
  Receive Date: 20110606
  Receipt Date: 20110524
  Transmission Date: 20111010
  Serious: Yes (Hospitalization)
  Sender: FDA-Public Use
  Company Number: ATE-11-03

PATIENT
  Age: 66 Year
  Sex: Female

DRUGS (4)
  1. ATENOLOL [Suspect]
     Indication: HYPERTENSION
     Dosage: 50 MG/DAY
  2. IV ROCURONIUM [Concomitant]
  3. PROPOFOL [Concomitant]
  4. REMIFENTANIL [Concomitant]

REACTIONS (1)
  - CARDIAC ARREST [None]
